FAERS Safety Report 5890670-3 (Version None)
Quarter: 2008Q3

REPORT INFORMATION
  Report Type: 
  Country: None (occurrence: None)
  Receive Date: 20080922
  Receipt Date: 20070921
  Transmission Date: 20090109
  Serious: No
  Sender: FDA-Public Use
  Company Number: US-BAYER-US-2007-036378

PATIENT
  Age: 52 Year
  Sex: Male

DRUGS (1)
  1. FERIDEX I.V. [Suspect]
     Indication: NUCLEAR MAGNETIC RESONANCE IMAGING
     Route: 042
     Dates: start: 20070801, end: 20070801

REACTIONS (1)
  - BACK PAIN [None]
